FAERS Safety Report 4831497-0 (Version None)
Quarter: 2005Q4

REPORT INFORMATION
  Report Type: 
  Country: None (occurrence: None)
  Receive Date: 20051116
  Receipt Date: 20051103
  Transmission Date: 20060501
  Serious: Yes (Hospitalization)
  Sender: FDA-Public Use
  Company Number: COV2-2005-00151

PATIENT
  Age: 67 Year
  Sex: Female
  Weight: 48 kg

DRUGS (14)
  1. FOSRENOL [Suspect]
     Indication: HYPERPHOSPHATAEMIA
     Dosage: 750 MG, 3X/DAY:TID, ORAL
     Route: 048
     Dates: start: 20050601, end: 20050707
  2. PREDNISONE [Concomitant]
  3. SYNTHROID [Concomitant]
  4. ZETIA [Concomitant]
  5. FOLTX (FOLIC ACID, CYANOCOBALAMIN) [Concomitant]
  6. TENORMIN [Concomitant]
  7. IMIPRAMINE [Concomitant]
  8. CATAPRES /USA/ (CLONIDINE HYDROCHLORIDE) [Concomitant]
  9. IRON (IRON) [Concomitant]
  10. MIRAPEX [Concomitant]
  11. HYDROCODONE BITARTRATE [Concomitant]
  12. AVAPRO [Concomitant]
  13. PREVACID [Concomitant]
  14. NEPHROCAPS (FOLIC ACID, VITAMINS NOS) [Concomitant]

REACTIONS (9)
  - CHEST PAIN [None]
  - CYANOSIS [None]
  - DIALYSIS [None]
  - JOINT SWELLING [None]
  - LABORATORY TEST ABNORMAL [None]
  - OEDEMA PERIPHERAL [None]
  - PERIPHERAL COLDNESS [None]
  - RENAL ATROPHY [None]
  - SEROSITIS [None]
